FAERS Safety Report 8537372-2 (Version None)
Quarter: 2012Q3

REPORT INFORMATION
  Report Type: 
  Country: None (occurrence: None)
  Receive Date: 20120725
  Receipt Date: 20120720
  Transmission Date: 20120928
  Serious: Yes (Hospitalization, Other)
  Sender: FDA-Public Use
  Company Number: DE-ROCHE-1066993

PATIENT
  Age: 61 Year
  Sex: Female
  Weight: 64 kg

DRUGS (7)
  1. VEMURAFENIB [Suspect]
     Dosage: RESTRATED
     Dates: start: 20120523
  2. LEVOTHYROXINE SODIUM [Concomitant]
  3. AMLODIPINE [Concomitant]
  4. VEMURAFENIB [Suspect]
     Dosage: DOSE REDUCED
     Dates: start: 20120509
  5. VEMURAFENIB [Suspect]
     Indication: MALIGNANT MELANOMA
     Dosage: TEMPORARILY INTERRUPTED ON 25/APR/2012
     Route: 048
     Dates: start: 20120309, end: 20120425
  6. PROPRANOLOL HCL [Concomitant]
  7. INSUMAN RAPID [Concomitant]
     Dates: start: 20120131

REACTIONS (2)
  - DRUG ERUPTION [None]
  - SQUAMOUS CELL CARCINOMA OF SKIN [None]
